FAERS Safety Report 4937363-4 (Version None)
Quarter: 2006Q1

REPORT INFORMATION
  Report Type: 
  Country: None (occurrence: None)
  Receive Date: 20060302
  Receipt Date: 20060210
  Transmission Date: 20060701
  Serious: Yes (Other)
  Sender: FDA-Public Use
  Company Number: AU200602002859

PATIENT
  Age: 8 Year
  Sex: Male

DRUGS (3)
  1. FLUOXETINE [Suspect]
     Indication: ASPERGER'S DISORDER
     Dosage: SEE IMAGE
     Dates: start: 20050814
  2. FLUOXETINE [Suspect]
     Indication: ASPERGER'S DISORDER
     Dosage: SEE IMAGE
     Dates: start: 20060118
  3. FLUOXETINE [Suspect]
     Indication: ASPERGER'S DISORDER
     Dosage: SEE IMAGE
     Dates: start: 20060209

REACTIONS (5)
  - CONVULSION [None]
  - DYSKINESIA [None]
  - LOSS OF CONSCIOUSNESS [None]
  - TONGUE BITING [None]
  - URINARY INCONTINENCE [None]
